FAERS Safety Report 10391825 (Version 28)
Quarter: 2017Q1

REPORT INFORMATION
  Report Type: Report from Study
  Country: CA (occurrence: CA)
  Receive Date: 20140819
  Receipt Date: 20170328
  Transmission Date: 20170428
  Serious: Yes (Hospitalization, Other)
  Sender: FDA-Public Use
  Company Number: CA-ROCHE-1451117

PATIENT
  Age: 59 Year
  Sex: Female
  Weight: 85 kg

DRUGS (9)
  1. ACTEMRA [Suspect]
     Active Substance: TOCILIZUMAB
     Route: 042
     Dates: start: 20120104
  2. CITALOPRAM [Concomitant]
     Active Substance: CITALOPRAM HYDROBROMIDE
  3. ZOPICLONE [Concomitant]
     Active Substance: ZOPICLONE
  4. ACTEMRA [Suspect]
     Active Substance: TOCILIZUMAB
     Indication: RHEUMATOID ARTHRITIS
     Route: 042
     Dates: start: 20110208
  5. ACTEMRA [Suspect]
     Active Substance: TOCILIZUMAB
     Route: 042
     Dates: start: 20160610
  6. CORTISONE [Suspect]
     Active Substance: CORTISONE\HYDROCORTISONE
     Indication: PAIN
     Route: 065
  7. ACTEMRA [Suspect]
     Active Substance: TOCILIZUMAB
     Route: 042
     Dates: start: 20160317
  8. LYRICA [Concomitant]
     Active Substance: PREGABALIN
  9. FUROSEMIDE. [Concomitant]
     Active Substance: FUROSEMIDE
     Indication: SWELLING

REACTIONS (31)
  - Back pain [Not Recovered/Not Resolved]
  - Urinary tract infection [Unknown]
  - Blood pressure systolic abnormal [Unknown]
  - Balance disorder [Unknown]
  - Facial pain [Not Recovered/Not Resolved]
  - Stress [Not Recovered/Not Resolved]
  - Blood pressure diastolic decreased [Unknown]
  - Blood pressure fluctuation [Unknown]
  - Constipation [Not Recovered/Not Resolved]
  - Eyelid dermatochalasis [Not Recovered/Not Resolved]
  - Nail disorder [Unknown]
  - Oedema peripheral [Not Recovered/Not Resolved]
  - Fall [Unknown]
  - Blood pressure increased [Unknown]
  - Blood pressure systolic increased [Unknown]
  - Dysarthria [Recovered/Resolved]
  - Pain [Recovering/Resolving]
  - Oedema [Recovering/Resolving]
  - Pneumonia [Not Recovered/Not Resolved]
  - Peripheral swelling [Not Recovered/Not Resolved]
  - Weight increased [Unknown]
  - Tooth loss [Not Recovered/Not Resolved]
  - Laceration [Recovering/Resolving]
  - Pain [Not Recovered/Not Resolved]
  - Hernia [Not Recovered/Not Resolved]
  - Loss of consciousness [Recovered/Resolved]
  - Fatigue [Unknown]
  - Ileus [Unknown]
  - Intestinal obstruction [Unknown]
  - Weight decreased [Recovering/Resolving]
  - Blood pressure systolic increased [Unknown]

NARRATIVE: CASE EVENT DATE: 2014
